FAERS Safety Report 16891695 (Version 1)
Quarter: 2019Q4

REPORT INFORMATION
  Report Type: Spontaneous
  Country: US (occurrence: US)
  Receive Date: 20190813
  Receipt Date: 20190813
  Transmission Date: 20200122
  Serious: No
  Sender: FDA-Public Use
  Company Number: None

PATIENT

DRUGS (1)
  1. BASAGLAR [Suspect]
     Active Substance: INSULIN GLARGINE

REACTIONS (6)
  - Eye disorder [None]
  - Malaise [None]
  - Drug dispensed to wrong patient [None]
  - Wrong product administered [None]
  - Blood glucose increased [None]
  - Confusional state [None]

NARRATIVE: CASE EVENT DATE: 2019
